FAERS Safety Report 12493716 (Version 1)
Quarter: 2016Q2

REPORT INFORMATION
  Report Type: Spontaneous
  Country: US (occurrence: US)
  Receive Date: 20160623
  Receipt Date: 20160623
  Transmission Date: 20160815
  Serious: No
  Sender: FDA-Public Use
  Company Number: US-CELGENEUS-USA-2016064426

PATIENT
  Sex: Male

DRUGS (1)
  1. OTEZLA [Suspect]
     Active Substance: APREMILAST
     Indication: PSORIASIS
     Dosage: 60 MILLIGRAM
     Route: 048
     Dates: start: 20160503

REACTIONS (7)
  - Drug ineffective [Unknown]
  - Tremor [Unknown]
  - Muscle tightness [Unknown]
  - Amnesia [Not Recovered/Not Resolved]
  - Speech disorder [Unknown]
  - Dyspnoea [Unknown]
  - Disturbance in attention [Unknown]
